FAERS Safety Report 4960628-7 (Version None)
Quarter: 2006Q2

REPORT INFORMATION
  Report Type: 
  Country: None (occurrence: None)
  Receive Date: 20060403
  Receipt Date: 20051129
  Transmission Date: 20061013
  Serious: Yes (Hospitalization, Disabling)
  Sender: FDA-Public Use
  Company Number: US-MERCK-0511USA04492

PATIENT
  Age: 56 Year
  Sex: Male
  Weight: 84 kg

DRUGS (6)
  1. VIOXX [Suspect]
     Indication: SWELLING
     Route: 048
     Dates: start: 20010201, end: 20040801
  2. VIOXX [Suspect]
     Indication: PAIN
     Route: 048
     Dates: start: 20010201, end: 20040801
  3. COSOPT [Concomitant]
     Route: 047
  4. XALATAN [Concomitant]
     Route: 065
  5. BEXTRA [Concomitant]
     Route: 065
     Dates: start: 20040401
  6. VICODIN [Concomitant]
     Route: 065
     Dates: start: 20040501, end: 20040601

REACTIONS (6)
  - ASTHENIA [None]
  - MEMORY IMPAIRMENT [None]
  - MYOCARDIAL INFARCTION [None]
  - NERVOUS SYSTEM DISORDER [None]
  - PARKINSON'S DISEASE [None]
  - SEBORRHOEIC DERMATITIS [None]
